FAERS Safety Report 6341863-2 (Version None)
Quarter: 2009Q3

REPORT INFORMATION
  Report Type: 
  Country: None (occurrence: None)
  Receive Date: 20090902
  Receipt Date: 20090113
  Transmission Date: 20100115
  Serious: Yes (Hospitalization)
  Sender: FDA-Public Use
  Company Number: CIP09000075

PATIENT
  Age: 25 Year
  Sex: Male

DRUGS (1)
  1. ASACOL [Suspect]
     Indication: COLITIS
     Dosage: ORAL
     Route: 048
     Dates: start: 20070101, end: 20070101

REACTIONS (3)
  - FEELING ABNORMAL [None]
  - IMPAIRED WORK ABILITY [None]
  - RENAL FAILURE CHRONIC [None]
